FAERS Safety Report 15388173 (Version 1)
Quarter: 2018Q3

REPORT INFORMATION
  Report Type: Spontaneous
  Country: FR (occurrence: FR)
  Receive Date: 20180915
  Receipt Date: 20180915
  Transmission Date: 20181010
  Serious: Yes (Hospitalization, Other)
  Sender: FDA-Public Use
  Company Number: FR-AUROBINDO-AUR-APL-2018-045528

PATIENT
  Age: 87 Year
  Sex: Female

DRUGS (3)
  1. KARDEGIC [Suspect]
     Active Substance: ASPIRIN DL-LYSINE
     Indication: CEREBROVASCULAR ACCIDENT
     Dosage: 1?0?0
     Route: 048
     Dates: start: 2012
  2. IBUPROFEN. [Suspect]
     Active Substance: IBUPROFEN
     Indication: FEMORAL NECK FRACTURE
     Dosage: OCCASIONNELLE
     Route: 048
     Dates: start: 201711, end: 20180126
  3. ARIXTRA [Suspect]
     Active Substance: FONDAPARINUX SODIUM
     Indication: CEREBROVASCULAR ACCIDENT
     Dosage: 1?0?0
     Route: 058
     Dates: start: 20180113, end: 20180126

REACTIONS (2)
  - Haemorrhagic anaemia [Recovered/Resolved]
  - Haematemesis [Recovered/Resolved]

NARRATIVE: CASE EVENT DATE: 20180126
